FAERS Safety Report 9288047 (Version 1)
Quarter: 2013Q1

REPORT INFORMATION
  Report Type: Spontaneous
  Country: US (occurrence: None)
  Receive Date: 20120912
  Receipt Date: 20120912
  Transmission Date: 20140127
  Serious: Yes (Life-Threatening, Hospitalization, Other)
  Sender: FDA-Public Use
  Company Number: ADR-2012-01641

PATIENT
  Sex: Male

DRUGS (2)
  1. LIORESAL [Suspect]
     Indication: MUSCLE SPASTICITY
  2. LIORESAL [Suspect]
     Indication: SPINAL CORD INJURY

REACTIONS (14)
  - Underdose [None]
  - Dyspnoea [None]
  - Pain [None]
  - Musculoskeletal stiffness [None]
  - Drug withdrawal syndrome [None]
  - Device malfunction [None]
  - Hyperthermia malignant [None]
  - Hypertension [None]
  - Pyrexia [None]
  - Loss of consciousness [None]
  - Hypotonia [None]
  - Overdose [None]
  - Hypotension [None]
  - Pneumothorax [None]
